FAERS Safety Report 20021370 (Version 3)
Quarter: 2021Q4

REPORT INFORMATION
  Report Type: Report from Study
  Country: PL (occurrence: PL)
  Receive Date: 20211101
  Receipt Date: 20211202
  Transmission Date: 20220303
  Serious: Yes (Hospitalization)
  Sender: FDA-Public Use
  Company Number: PL-CELGENE-POL-20211006755

PATIENT
  Sex: Female

DRUGS (45)
  1. OZANIMOD [Suspect]
     Active Substance: OZANIMOD
     Indication: Relapsing multiple sclerosis
     Route: 048
     Dates: start: 20161115, end: 20211125
  2. SERTRALINE HYDROCHLORIDE [Concomitant]
     Active Substance: SERTRALINE HYDROCHLORIDE
     Indication: Depression
     Dosage: 50 MILLIGRAM
     Route: 048
     Dates: start: 20170901
  3. SERTRALINE HYDROCHLORIDE [Concomitant]
     Active Substance: SERTRALINE HYDROCHLORIDE
     Dosage: 100 MILLIGRAM
     Route: 048
  4. DESOGESTREL [Concomitant]
     Active Substance: DESOGESTREL
     Indication: Contraception
     Dosage: 1 TAB.
     Route: 048
     Dates: start: 20170912
  5. BETAHISTINE [Concomitant]
     Active Substance: BETAHISTINE
     Indication: Dizziness
     Dosage: 48 MILLIGRAM
     Route: 048
     Dates: start: 20190901
  6. BETAHISTINE [Concomitant]
     Active Substance: BETAHISTINE
     Dosage: 24 MILLIGRAM
     Route: 048
  7. Biofer (ferrum) [Concomitant]
     Indication: Microcytic anaemia
     Dosage: 1 TAB. DOSING UNIT
     Route: 048
     Dates: start: 20180501
  8. DEBRETIN [Concomitant]
     Indication: Constipation
     Dosage: 1 TAB. DOSING UNIT
     Route: 048
     Dates: start: 20200915
  9. DALFAMPRIDINE [Concomitant]
     Active Substance: DALFAMPRIDINE
     Indication: Muscle spasticity
     Dosage: 20 MILLIGRAM
     Route: 048
     Dates: start: 20170525
  10. GABAPENTIN [Concomitant]
     Active Substance: GABAPENTIN
     Indication: Pain in extremity
     Dosage: 300 MILLIGRAM
     Route: 048
     Dates: start: 20180810
  11. OMEPRAZOLE [Concomitant]
     Active Substance: OMEPRAZOLE
     Indication: Sciatica
     Dosage: 20 MILLIGRAM
     Route: 048
     Dates: start: 20210910
  12. OMEPRAZOLE [Concomitant]
     Active Substance: OMEPRAZOLE
     Indication: Multiple sclerosis relapse
  13. MYDOCALM FORTE [Concomitant]
     Indication: Muscle spasticity
     Dosage: 300 MILLIGRAM
     Route: 048
     Dates: start: 20171116
  14. Orton flex [Concomitant]
     Indication: Osteoarthritis
     Dosage: 1(TABLET DOSING UNIT)
     Route: 048
     Dates: start: 20170415
  15. ACETAMINOPHEN\TRAMADOL HYDROCHLORIDE [Concomitant]
     Active Substance: ACETAMINOPHEN\TRAMADOL HYDROCHLORIDE
     Indication: Sciatica
     Dosage: 1 (TABLET DOSING UNIT)
     Route: 048
     Dates: start: 20210910
  16. PREGABALIN [Concomitant]
     Active Substance: PREGABALIN
     Indication: Sciatica
     Dosage: 300 MILLIGRAM
     Route: 048
     Dates: start: 20210910
  17. PREGABALIN [Concomitant]
     Active Substance: PREGABALIN
     Dosage: 75 MILLIGRAM
     Route: 048
  18. ACEMETACIN [Concomitant]
     Active Substance: ACEMETACIN
     Indication: Sciatica
     Dosage: 120 MILLIGRAM
     Route: 048
     Dates: start: 20210910
  19. VITAMIN D3 [Concomitant]
     Active Substance: CHOLECALCIFEROL
     Indication: Prophylaxis
     Dosage: 1000 IU (INTERNATIONAL UNIT)
     Route: 048
     Dates: start: 20171113
  20. VITAMIN D3 [Concomitant]
     Active Substance: CHOLECALCIFEROL
     Dosage: 2000 MICROGRAM
     Route: 048
  21. MEBEVERINE [Concomitant]
     Active Substance: MEBEVERINE
     Indication: Irritable bowel syndrome
     Dosage: 135 MILLIGRAM
     Route: 048
  22. MEBEVERINE [Concomitant]
     Active Substance: MEBEVERINE
     Dosage: 135 MILLIGRAM
     Route: 048
  23. LYNESTRENOL [Concomitant]
     Active Substance: LYNESTRENOL
     Indication: Uterine leiomyoma
     Dosage: 5 MILLIGRAM
     Route: 048
  24. TIZANIDINE [Concomitant]
     Active Substance: TIZANIDINE
     Indication: Muscle spasticity
     Dosage: 4 MILLIGRAM
     Route: 048
  25. INOSINE PRANOBEX [Concomitant]
     Active Substance: INOSINE PRANOBEX
     Indication: Upper respiratory tract infection
     Dosage: 250 MILLIGRAM
     Route: 048
  26. IBUPROM MAX [Concomitant]
     Indication: Upper respiratory tract infection
     Dosage: 400 MILLIGRAM
     Route: 048
  27. Multi electrolyte liquid [Concomitant]
     Indication: Vertigo
     Dosage: 1000 MILLIGRAM
     Route: 041
  28. Metoclopradium [Concomitant]
     Indication: Vomiting
     Dosage: 2 AMPULE DOSING
     Route: 041
  29. KETOPROFENUM [Concomitant]
     Indication: Headache
     Dosage: 100 MILLIGRAM
     Route: 041
  30. POTASSIUM [Concomitant]
     Active Substance: POTASSIUM
     Indication: Hypovitaminosis
     Dosage: 2
     Route: 048
  31. AUGMENTIN [Concomitant]
     Active Substance: AMOXICILLIN\CLAVULANATE POTASSIUM
     Indication: Upper respiratory tract infection
     Dosage: 875/125 MILLIGRAM
     Route: 048
  32. LACTOBACILLUS RHAMNOSUS [Concomitant]
     Active Substance: LACTOBACILLUS RHAMNOSUS
     Indication: Antibiotic level
     Dosage: 1 TABLET
     Route: 048
  33. BACLOFEN [Concomitant]
     Active Substance: BACLOFEN
     Indication: Muscle spasticity
     Dosage: 10 MILLIGRAM
     Route: 048
  34. Structum [Concomitant]
     Indication: Degenerative bone disease
     Dosage: 1 TABLET
     Route: 048
  35. Structum [Concomitant]
     Indication: Pain
     Dosage: 1 OTHER
     Route: 061
  36. HEMORIGEN [Concomitant]
     Indication: Uterine leiomyoma
     Dosage: 1 TABLET
     Route: 048
  37. ASCORBIC ACID\RUTIN [Concomitant]
     Active Substance: ASCORBIC ACID\RUTIN
     Indication: Uterine leiomyoma
     Dosage: 1 TABLET
     Route: 048
  38. SOLU-MEDROL [Concomitant]
     Active Substance: METHYLPREDNISOLONE SODIUM SUCCINATE
     Indication: Multiple sclerosis relapse
     Dosage: 1 GRAM
     Route: 041
  39. TORECAN [Concomitant]
     Active Substance: THIETHYLPERAZINE MALATE
     Indication: Dizziness
     Dosage: 6.5 MILLIGRAM
     Route: 048
  40. TORECAN [Concomitant]
     Active Substance: THIETHYLPERAZINE MALATE
     Dosage: 1 TABLET
     Route: 048
  41. POTASSIUM CHLORIDE [Concomitant]
     Active Substance: POTASSIUM CHLORIDE
     Indication: Dizziness
     Dosage: 750 MILLIGRAM
     Route: 048
  42. MEPRELON [Concomitant]
     Indication: Multiple sclerosis relapse
     Dosage: 1 GRAM
     Route: 041
  43. NAPROXEN [Concomitant]
     Active Substance: NAPROXEN
     Indication: Sciatica
     Dosage: 220 MILLIGRAM
     Route: 048
  44. Neurovit [Concomitant]
     Indication: Sciatica
     Dosage: 1 TABLET
     Route: 048
  45. Biofenac [Concomitant]
     Indication: Sciatica
     Dosage: 100 MILLIGRAM
     Route: 048

REACTIONS (1)
  - Uterine leiomyoma [Recovered/Resolved]

NARRATIVE: CASE EVENT DATE: 20211020
